FAERS Safety Report 23222964 (Version 2)
Quarter: 2024Q1

REPORT INFORMATION
  Report Type: Spontaneous
  Country: US (occurrence: US)
  Receive Date: 20231123
  Receipt Date: 20240322
  Transmission Date: 20240410
  Serious: Yes (Other)
  Sender: FDA-Public Use
  Company Number: US-PFIZER INC-PV202300186740

PATIENT
  Age: 88 Year
  Sex: Female
  Weight: 46.72 kg

DRUGS (2)
  1. IBRANCE [Suspect]
     Active Substance: PALBOCICLIB
     Indication: Breast cancer metastatic
     Dosage: 125 MG CYCLIC: ONCE A DAY FOR THREE CYCLES AND THEN HAS 1 WEEK OFF
     Route: 048
  2. EXEMESTANE [Concomitant]
     Active Substance: EXEMESTANE
     Dosage: UNK, DAILY

REACTIONS (7)
  - Wrist fracture [Unknown]
  - Macular degeneration [Unknown]
  - Arthralgia [Unknown]
  - Fatigue [Unknown]
  - Alopecia [Unknown]
  - Product prescribing issue [Unknown]
  - Product packaging quantity issue [Unknown]

NARRATIVE: CASE EVENT DATE: 20230101
